FAERS Safety Report 9444661 (Version 3)
Quarter: 2014Q2

REPORT INFORMATION
  Report Type: Spontaneous
  Country: US (occurrence: US)
  Receive Date: 20130807
  Receipt Date: 20140513
  Transmission Date: 20141212
  Serious: Yes (Other)
  Sender: FDA-Public Use
  Company Number: US-PFIZER INC-2013229296

PATIENT
  Sex: Female

DRUGS (1)
  1. EFFEXOR XR [Suspect]
     Dosage: UNK

REACTIONS (7)
  - Drug dependence [Unknown]
  - Generalised anxiety disorder [Unknown]
  - Reflexes abnormal [Unknown]
  - Depression [Unknown]
  - Irritability [Unknown]
  - Rash [Unknown]
  - Nightmare [Unknown]
